FAERS Safety Report 4530823-X (Version None)
Quarter: 2004Q4

REPORT INFORMATION
  Report Type: 
  Country: None (occurrence: None)
  Receive Date: 20041216
  Receipt Date: 20041130
  Transmission Date: 20050328
  Serious: Yes (Other)
  Sender: FDA-Public Use
  Company Number: GBS041216051

PATIENT
  Age: 13 Year
  Sex: Male

DRUGS (2)
  1. STRATTERA [Suspect]
     Indication: ATTENTION DEFICIT/HYPERACTIVITY DISORDER
     Dosage: 40 MG
     Dates: start: 20041101
  2. METHYLPHENIDATE [Concomitant]

REACTIONS (1)
  - SUICIDAL IDEATION [None]
